FAERS Safety Report 12458765 (Version 19)
Quarter: 2022Q2

REPORT INFORMATION
  Report Type: Other
  Country: GB (occurrence: None)
  Receive Date: 20160613
  Receipt Date: 20220421
  Transmission Date: 20220721
  Serious: Yes (Other)
  Sender: FDA-Public Use
  Company Number: GB-ROCHE-1762999

PATIENT
  Age: 54 Year
  Sex: Female

DRUGS (112)
  1. TRASTUZUMAB [Suspect]
     Active Substance: TRASTUZUMAB
     Indication: HER2 positive breast cancer
     Route: 058
     Dates: start: 20150716, end: 20171222
  2. EXEMESTANE [Suspect]
     Active Substance: EXEMESTANE
     Indication: HER2 positive breast cancer
     Route: 048
     Dates: start: 20170428, end: 20180110
  3. LETROZOLE [Suspect]
     Active Substance: LETROZOLE
     Indication: HER2 positive breast cancer
     Route: 048
     Dates: start: 201507, end: 20170427
  4. ADO-TRASTUZUMAB EMTANSINE [Suspect]
     Active Substance: ADO-TRASTUZUMAB EMTANSINE
     Indication: HER2 positive breast cancer
     Route: 042
     Dates: start: 20180118
  5. CITALOPRAM [Concomitant]
     Active Substance: CITALOPRAM HYDROBROMIDE
     Route: 048
     Dates: start: 2005
  6. CITALOPRAM [Concomitant]
     Active Substance: CITALOPRAM HYDROBROMIDE
     Route: 048
     Dates: start: 20210522
  7. LANSOPRAZOLE [Concomitant]
     Active Substance: LANSOPRAZOLE
     Route: 048
     Dates: start: 2001
  8. LANSOPRAZOLE [Concomitant]
     Active Substance: LANSOPRAZOLE
     Dosage: REFLUX
     Route: 048
  9. CODEINE [Concomitant]
     Active Substance: CODEINE
     Dosage: AS NEEDED
     Route: 048
     Dates: start: 201504
  10. DEXAMETHASONE [Concomitant]
     Active Substance: DEXAMETHASONE
     Indication: Metastases to bone
     Route: 048
     Dates: start: 20151020, end: 20151103
  11. DEXAMETHASONE [Concomitant]
     Active Substance: DEXAMETHASONE
     Route: 048
     Dates: start: 20151104, end: 20151110
  12. DEXAMETHASONE [Concomitant]
     Active Substance: DEXAMETHASONE
     Dosage: REDUCING DOSE FROM HOSPITAL ADMISSION 8/OCT/2015- 10/OCT/2015
     Route: 048
     Dates: start: 20151008, end: 20151020
  13. DEXAMETHASONE [Concomitant]
     Active Substance: DEXAMETHASONE
     Dosage: REDUCING WEEKLY DOSE
     Route: 048
     Dates: start: 20151111, end: 20151117
  14. DEXAMETHASONE [Concomitant]
     Active Substance: DEXAMETHASONE
     Route: 048
     Dates: start: 20151118, end: 20151124
  15. DEXAMETHASONE [Concomitant]
     Active Substance: DEXAMETHASONE
     Dosage: REDUCING?WEEKLY DOSE
     Route: 048
     Dates: start: 20151125, end: 20151202
  16. ACETAMINOPHEN [Concomitant]
     Active Substance: ACETAMINOPHEN
     Route: 048
     Dates: start: 201504, end: 20210522
  17. GABAPENTIN [Concomitant]
     Active Substance: GABAPENTIN
     Route: 048
     Dates: start: 20151231
  18. GABAPENTIN [Concomitant]
     Active Substance: GABAPENTIN
     Route: 067
  19. GABAPENTIN [Concomitant]
     Active Substance: GABAPENTIN
     Route: 048
  20. VITAMIN D3 [Concomitant]
     Active Substance: CHOLECALCIFEROL
     Dosage: BONE DISEASE
     Route: 048
     Dates: start: 20150827
  21. CYCLIZINE [Concomitant]
     Active Substance: CYCLIZINE
     Route: 048
     Dates: start: 201507
  22. LISINOPRIL [Concomitant]
     Active Substance: LISINOPRIL
     Indication: Ejection fraction decreased
     Route: 048
     Dates: start: 20161110
  23. MORPHINE SULFATE [Concomitant]
     Active Substance: MORPHINE SULFATE
     Indication: Metastases to bone
     Route: 048
     Dates: start: 201611
  24. DENOSUMAB [Concomitant]
     Active Substance: DENOSUMAB
     Indication: Metastases to bone
     Route: 058
     Dates: start: 20170604, end: 20170613
  25. DENOSUMAB [Concomitant]
     Active Substance: DENOSUMAB
     Dosage: TREATMENT OF BONE METASTASES
     Route: 058
     Dates: start: 20180118
  26. PROMETHAZINE HYDROCHLORIDE [Concomitant]
     Active Substance: PROMETHAZINE HYDROCHLORIDE
     Route: 048
  27. PROMETHAZINE HYDROCHLORIDE [Concomitant]
     Active Substance: PROMETHAZINE HYDROCHLORIDE
     Route: 048
  28. PEPTAC (UNITED KINGDOM) [Concomitant]
     Indication: Dyspepsia
     Route: 048
  29. MEROPENEM [Concomitant]
     Active Substance: MEROPENEM
     Indication: Pyrexia
     Route: 042
     Dates: start: 20180813, end: 20180814
  30. MEROPENEM [Concomitant]
     Active Substance: MEROPENEM
     Indication: Sepsis
     Route: 042
     Dates: start: 20181222, end: 20181227
  31. MEROPENEM [Concomitant]
     Active Substance: MEROPENEM
     Indication: Pneumonia
     Route: 042
     Dates: start: 20190205, end: 20190205
  32. MEROPENEM [Concomitant]
     Active Substance: MEROPENEM
     Route: 042
     Dates: start: 20190610, end: 20190617
  33. MEROPENEM [Concomitant]
     Active Substance: MEROPENEM
     Route: 042
     Dates: start: 20200622, end: 20200622
  34. MEROPENEM [Concomitant]
     Active Substance: MEROPENEM
     Route: 042
     Dates: start: 20200728, end: 20200728
  35. METRONIDAZOLE [Concomitant]
     Active Substance: METRONIDAZOLE
     Indication: Cellulitis
     Route: 048
     Dates: start: 20170701, end: 20170708
  36. METRONIDAZOLE [Concomitant]
     Active Substance: METRONIDAZOLE
     Indication: Osteomyelitis
     Route: 048
     Dates: start: 20180915, end: 20180921
  37. AMOXICILLIN [Concomitant]
     Active Substance: AMOXICILLIN
     Indication: Osteomyelitis
     Route: 048
     Dates: start: 20170701, end: 20170706
  38. AMOXICILLIN [Concomitant]
     Active Substance: AMOXICILLIN
     Indication: Lower respiratory tract infection
     Route: 048
     Dates: start: 20180701, end: 20180711
  39. AMOXICILLIN [Concomitant]
     Active Substance: AMOXICILLIN
     Indication: Pyrexia
     Route: 042
     Dates: start: 20191218, end: 20191219
  40. AMOXICILLIN [Concomitant]
     Active Substance: AMOXICILLIN
     Indication: Pneumonia
     Route: 048
     Dates: start: 20180701, end: 20180711
  41. AMOXICILLIN [Concomitant]
     Active Substance: AMOXICILLIN
     Route: 048
     Dates: start: 20190414
  42. AMOXICILLIN [Concomitant]
     Active Substance: AMOXICILLIN
     Route: 042
     Dates: start: 20191111, end: 20191115
  43. AMOXICILLIN [Concomitant]
     Active Substance: AMOXICILLIN
     Route: 048
     Dates: start: 20191115, end: 20191118
  44. AMOXICILLIN [Concomitant]
     Active Substance: AMOXICILLIN
     Route: 048
     Dates: start: 20191219, end: 20191221
  45. AMOXICILLIN [Concomitant]
     Active Substance: AMOXICILLIN
     Route: 042
     Dates: start: 20200622, end: 20200626
  46. AMOXICILLIN [Concomitant]
     Active Substance: AMOXICILLIN
     Route: 048
     Dates: start: 20200626, end: 20200628
  47. PENICILLIN G [Concomitant]
     Active Substance: PENICILLIN G
     Indication: Pyrexia
     Route: 042
     Dates: start: 20180912, end: 20180915
  48. PENICILLIN G [Concomitant]
     Active Substance: PENICILLIN G
     Indication: Cellulitis
  49. DOXYCYCLINE [Concomitant]
     Active Substance: DOXYCYCLINE
     Indication: Lower respiratory tract infection
     Route: 048
     Dates: start: 20170112, end: 20170118
  50. DOXYCYCLINE [Concomitant]
     Active Substance: DOXYCYCLINE
     Indication: Pyrexia
     Route: 048
     Dates: start: 20180814, end: 20180814
  51. DOXYCYCLINE [Concomitant]
     Active Substance: DOXYCYCLINE
     Indication: Pneumonia
     Route: 048
     Dates: start: 20190929, end: 20191005
  52. DOXYCYCLINE [Concomitant]
     Active Substance: DOXYCYCLINE
     Route: 048
     Dates: start: 20180815
  53. DOXYCYCLINE [Concomitant]
     Active Substance: DOXYCYCLINE
     Route: 048
     Dates: start: 20191223, end: 20191230
  54. CLARITHROMYCIN [Concomitant]
     Active Substance: CLARITHROMYCIN
     Indication: Lower respiratory tract infection
     Route: 048
     Dates: start: 20180701, end: 20180711
  55. CLARITHROMYCIN [Concomitant]
     Active Substance: CLARITHROMYCIN
     Indication: Pyrexia
     Route: 048
     Dates: start: 20190415
  56. CLARITHROMYCIN [Concomitant]
     Active Substance: CLARITHROMYCIN
     Indication: Pneumonia
     Route: 042
     Dates: start: 20190611, end: 20190611
  57. CLARITHROMYCIN [Concomitant]
     Active Substance: CLARITHROMYCIN
     Route: 048
     Dates: start: 20191111, end: 20191118
  58. CLARITHROMYCIN [Concomitant]
     Active Substance: CLARITHROMYCIN
     Route: 048
     Dates: start: 20191219, end: 20191221
  59. CLARITHROMYCIN [Concomitant]
     Active Substance: CLARITHROMYCIN
     Route: 048
     Dates: start: 20200622, end: 20200628
  60. CLARITHROMYCIN [Concomitant]
     Active Substance: CLARITHROMYCIN
     Route: 048
     Dates: start: 20200728, end: 20200803
  61. TEICOPLANIN [Concomitant]
     Active Substance: TEICOPLANIN
     Indication: Pyrexia
     Route: 042
     Dates: start: 20181019, end: 20181025
  62. TEICOPLANIN [Concomitant]
     Active Substance: TEICOPLANIN
     Route: 042
     Dates: start: 20200728, end: 20200803
  63. LINEZOLID [Concomitant]
     Active Substance: LINEZOLID
     Indication: Pyrexia
     Route: 048
     Dates: start: 20181223, end: 20181227
  64. LINEZOLID [Concomitant]
     Active Substance: LINEZOLID
     Indication: Cellulitis
     Dosage: STAPHYLOCOCCUS?AURES SHOWN ON?SKIN/?SUPERFISCIAL?WOUND SWAB A
     Route: 042
     Dates: start: 20190611, end: 20190621
  65. LINEZOLID [Concomitant]
     Active Substance: LINEZOLID
     Route: 042
     Dates: start: 20200206, end: 20200212
  66. BUTYLSCOPOLAMINE BROMIDE [Concomitant]
     Active Substance: BUTYLSCOPOLAMINE BROMIDE
     Indication: Nausea
     Route: 048
     Dates: start: 20181222
  67. PIPERACILLIN SODIUM\TAZOBACTAM SODIUM [Concomitant]
     Active Substance: PIPERACILLIN SODIUM\TAZOBACTAM SODIUM
     Indication: Pneumonia
     Route: 042
     Dates: start: 20191221, end: 20191227
  68. PIPERACILLIN SODIUM\TAZOBACTAM SODIUM [Concomitant]
     Active Substance: PIPERACILLIN SODIUM\TAZOBACTAM SODIUM
     Indication: Cellulitis
     Route: 042
     Dates: start: 20200202, end: 20200206
  69. AMOXICILLIN\CLAVULANATE POTASSIUM [Concomitant]
     Active Substance: AMOXICILLIN\CLAVULANATE POTASSIUM
     Indication: Pyrexia
     Route: 048
     Dates: start: 20190322
  70. AMOXICILLIN\CLAVULANATE POTASSIUM [Concomitant]
     Active Substance: AMOXICILLIN\CLAVULANATE POTASSIUM
     Indication: Cellulitis
     Route: 048
     Dates: start: 20190205, end: 20190206
  71. DOXYCYCLINE [Concomitant]
     Active Substance: DOXYCYCLINE
     Indication: Herpes zoster
     Route: 048
     Dates: start: 20180815
  72. DOXYCYCLINE [Concomitant]
     Active Substance: DOXYCYCLINE
     Indication: Oral herpes
     Route: 048
     Dates: start: 20200728, end: 20200728
  73. DOXYCYCLINE [Concomitant]
     Active Substance: DOXYCYCLINE
     Indication: Pneumonia
  74. FLUCLOXACILLIN [Concomitant]
     Active Substance: FLUCLOXACILLIN
     Indication: Cellulitis
     Dosage: PARONCHIA OF FINGER + TOE
     Route: 048
     Dates: start: 20180910, end: 20180912
  75. FLUCLOXACILLIN [Concomitant]
     Active Substance: FLUCLOXACILLIN
     Indication: Pyrexia
     Route: 048
     Dates: start: 20180912, end: 20180915
  76. FLUCLOXACILLIN [Concomitant]
     Active Substance: FLUCLOXACILLIN
     Route: 048
     Dates: start: 20180915, end: 20180921
  77. FLUCLOXACILLIN [Concomitant]
     Active Substance: FLUCLOXACILLIN
     Dates: start: 20180912, end: 20180915
  78. FLUCLOXACILLIN [Concomitant]
     Active Substance: FLUCLOXACILLIN
     Route: 042
     Dates: start: 20020130, end: 20200202
  79. CIPROFLOXACIN [Concomitant]
     Active Substance: CIPROFLOXACIN
     Indication: Pyrexia
     Route: 048
     Dates: start: 20190205, end: 20190206
  80. COTRIMOXAZOLE [Concomitant]
     Active Substance: SULFAMETHOXAZOLE\TRIMETHOPRIM
     Indication: Pyrexia
     Route: 048
     Dates: start: 20190206, end: 20190211
  81. COTRIMOXAZOLE [Concomitant]
     Active Substance: SULFAMETHOXAZOLE\TRIMETHOPRIM
     Indication: Sepsis
     Route: 042
     Dates: start: 20190611, end: 20190611
  82. COTRIMOXAZOLE [Concomitant]
     Active Substance: SULFAMETHOXAZOLE\TRIMETHOPRIM
     Indication: Pneumonia
     Dosage: 80/400, 1 TABLET
     Route: 048
     Dates: start: 20181015, end: 20181022
  83. COTRIMOXAZOLE [Concomitant]
     Active Substance: SULFAMETHOXAZOLE\TRIMETHOPRIM
     Route: 048
     Dates: start: 20200728, end: 20200803
  84. CLINDAMYCIN [Concomitant]
     Active Substance: CLINDAMYCIN
     Indication: Cellulitis
     Dosage: STAPHYLOCOCCUS?AURES SHOWN ON?SKIN/?SUPERFISCIAL?WOUND SWAB A
     Route: 042
     Dates: start: 20190611, end: 20190621
  85. CLINDAMYCIN [Concomitant]
     Active Substance: CLINDAMYCIN
     Route: 042
     Dates: start: 20200206, end: 20200212
  86. ENOXAPARIN SODIUM [Concomitant]
     Active Substance: ENOXAPARIN SODIUM
     Indication: Thrombolysis
     Dosage: FOTR DVT PROHYLAXIS,
     Route: 058
     Dates: start: 20190610, end: 20190623
  87. ENOXAPARIN SODIUM [Concomitant]
     Active Substance: ENOXAPARIN SODIUM
     Dosage: THROMBOLYSIS?PROPHYLAXIS
     Route: 058
     Dates: start: 20200622, end: 20200623
  88. ENOXAPARIN SODIUM [Concomitant]
     Active Substance: ENOXAPARIN SODIUM
     Route: 058
     Dates: start: 20200625, end: 20200625
  89. ENOXAPARIN SODIUM [Concomitant]
     Active Substance: ENOXAPARIN SODIUM
     Dosage: DVT PROPHYLAXIS
     Route: 058
     Dates: start: 20200728, end: 20200805
  90. LOPERAMIDE [Concomitant]
     Active Substance: LOPERAMIDE
     Indication: Diarrhoea
     Dates: start: 201804, end: 2019
  91. TINZAPARIN [Concomitant]
     Active Substance: TINZAPARIN
     Indication: Deep vein thrombosis
     Dosage: 20000 U
     Route: 058
     Dates: start: 20190928
  92. TINZAPARIN [Concomitant]
     Active Substance: TINZAPARIN
     Dosage: POSSSIBLE DVT?TREATMENT
     Route: 058
     Dates: start: 20200624, end: 20200624
  93. NAPROXEN [Concomitant]
     Active Substance: NAPROXEN
     Dosage: UNKNOWN?EXACT?INDICATION
     Route: 048
  94. MAGNESIUM ASPARTATE [Concomitant]
     Active Substance: MAGNESIUM ASPARTATE
     Indication: Hypomagnesaemia
     Route: 048
     Dates: start: 20191111
  95. FUROSEMIDE [Concomitant]
     Active Substance: FUROSEMIDE
     Indication: Oedema peripheral
     Route: 048
     Dates: start: 20191113, end: 20191116
  96. FUROSEMIDE [Concomitant]
     Active Substance: FUROSEMIDE
     Indication: Oedema
     Route: 048
     Dates: start: 20191117
  97. FUROSEMIDE [Concomitant]
     Active Substance: FUROSEMIDE
     Route: 042
     Dates: start: 20200622, end: 20200623
  98. FUROSEMIDE [Concomitant]
     Active Substance: FUROSEMIDE
     Route: 042
     Dates: start: 20200623, end: 20200626
  99. FUROSEMIDE [Concomitant]
     Active Substance: FUROSEMIDE
     Route: 048
     Dates: start: 20200626
  100. ZANAMIVIR [Concomitant]
     Active Substance: ZANAMIVIR
     Indication: Pyrexia
     Dosage: INHALANT
     Dates: start: 20191218, end: 20191219
  101. MORPHINE SULFATE [Concomitant]
     Active Substance: MORPHINE SULFATE
     Route: 048
     Dates: start: 201504, end: 20160516
  102. MORPHINE SULFATE [Concomitant]
     Active Substance: MORPHINE SULFATE
     Route: 048
     Dates: start: 20150516, end: 201611
  103. CALCIUM [Concomitant]
     Active Substance: CALCIUM
     Dosage: BONE DISEASE
     Route: 048
     Dates: start: 20150727, end: 20180117
  104. DERMOL [Concomitant]
     Active Substance: BENZALKONIUM CHLORIDE\CHLORHEXIDINE HYDROCHLORIDE\ISOPROPYL MYRISTATE\PARAFFIN
     Dosage: FOR SKIN
     Route: 061
  105. VANCOMYCIN [Concomitant]
     Active Substance: VANCOMYCIN
     Indication: Cellulitis
     Route: 042
     Dates: start: 20200201, end: 20200206
  106. RIFAMPIN [Concomitant]
     Active Substance: RIFAMPIN
     Indication: Cellulitis
     Route: 048
     Dates: start: 20200212, end: 20200212
  107. LEVOTHYROXINE [Concomitant]
     Active Substance: LEVOTHYROXINE
     Indication: Hypothyroidism
     Route: 048
     Dates: start: 20200311
  108. PREDNISOLONE [Concomitant]
     Active Substance: PREDNISOLONE
     Indication: Pneumonia
     Route: 048
     Dates: start: 20200625, end: 20200629
  109. ENOXAPARIN SODIUM [Concomitant]
     Active Substance: ENOXAPARIN SODIUM
     Route: 058
     Dates: start: 20201121, end: 20201203
  110. ENOXAPARIN SODIUM [Concomitant]
     Active Substance: ENOXAPARIN SODIUM
     Route: 058
     Dates: start: 20201204, end: 20201210
  111. ZOMETA [Concomitant]
     Active Substance: ZOLEDRONIC ACID
  112. ACYCLOVIR [Concomitant]
     Active Substance: ACYCLOVIR

REACTIONS (9)
  - Lymphoedema [Recovered/Resolved]
  - Herpes zoster [Recovered/Resolved]
  - Oral herpes [Recovered/Resolved]
  - Humerus fracture [Recovered/Resolved]
  - Back pain [Not Recovered/Not Resolved]
  - Musculoskeletal stiffness [Not Recovered/Not Resolved]
  - Anaemia [Recovered/Resolved]
  - Dyspepsia [Not Recovered/Not Resolved]
  - Dyspepsia [Recovered/Resolved]

NARRATIVE: CASE EVENT DATE: 20151112
